FAERS Safety Report 8113922-5 (Version None)
Quarter: 2012Q1

REPORT INFORMATION
  Report Type: 
  Country: None (occurrence: None)
  Receive Date: 20120203
  Receipt Date: 20120130
  Transmission Date: 20120608
  Serious: Yes (Life-Threatening)
  Sender: FDA-Public Use
  Company Number: BR-ROCHE-660107

PATIENT
  Sex: Male
  Weight: 81 kg

DRUGS (4)
  1. MIDAZOLAM HCL [Suspect]
     Route: 042
     Dates: start: 20090924, end: 20090924
  2. MIDAZOLAM HCL [Suspect]
     Indication: SEDATIVE THERAPY
     Dosage: FORM: INFUSION
     Route: 042
     Dates: start: 20060101, end: 20110101
  3. CITALOPRAM HYDROBROMIDE [Suspect]
     Indication: PRODUCT USED FOR UNKNOWN INDICATION
     Route: 048
  4. CLONAZEPAM [Suspect]
     Indication: SUICIDAL BEHAVIOUR
     Route: 048
     Dates: start: 20111208

REACTIONS (3)
  - SUICIDE ATTEMPT [None]
  - OVERDOSE [None]
  - DRUG INEFFECTIVE [None]
